FAERS Safety Report 7609339-X (Version None)
Quarter: 2011Q3

REPORT INFORMATION
  Report Type: 
  Country: None (occurrence: None)
  Receive Date: 20110714
  Receipt Date: 20110705
  Transmission Date: 20111222
  Serious: Yes (Hospitalization, Other)
  Sender: FDA-Public Use
  Company Number: PHHY2011JP50463

PATIENT
  Age: 68 Year
  Sex: Male
  Weight: 45 kg

DRUGS (4)
  1. VOLTAREN [Suspect]
     Dosage: TWO CAPSULE OF 37.5 MG DAILY
     Route: 048
     Dates: start: 20100401
  2. LANSOPRAZOLE [Suspect]
     Indication: GASTRIC ULCER
     Dosage: 30 MG, DAILY
     Route: 048
     Dates: start: 20090801, end: 20091130
  3. ELENTAL [Concomitant]
     Route: 048
  4. VOLTAREN [Suspect]
     Indication: ANKYLOSING SPONDYLITIS
     Dosage: TWO CAPSULE OF 37.5 MG DAILY
     Route: 048
     Dates: start: 19970101, end: 20091130

REACTIONS (15)
  - HYPOPROTEINAEMIA [None]
  - ALANINE AMINOTRANSFERASE INCREASED [None]
  - DECREASED APPETITE [None]
  - BLOOD ALBUMIN DECREASED [None]
  - BLOOD CREATININE INCREASED [None]
  - WEIGHT DECREASED [None]
  - RED BLOOD CELL COUNT DECREASED [None]
  - ASPARTATE AMINOTRANSFERASE INCREASED [None]
  - PAIN [None]
  - HAEMOGLOBIN DECREASED [None]
  - COLITIS MICROSCOPIC [None]
  - DIARRHOEA [None]
  - ULCER [None]
  - BLOOD ALKALINE PHOSPHATASE INCREASED [None]
  - HAEMATOCRIT DECREASED [None]
